FAERS Safety Report 5891730-3 (Version None)
Quarter: 2008Q3

REPORT INFORMATION
  Report Type: 
  Country: None (occurrence: None)
  Receive Date: 20080918
  Receipt Date: 20080904
  Transmission Date: 20090109
  Serious: Yes (Other)
  Sender: FDA-Public Use
  Company Number: DSA_32387_2008

PATIENT
  Age: 86 Year
  Sex: Male

DRUGS (4)
  1. ENALAPRIL MALEATE [Suspect]
     Indication: HYPERTENSION
     Dosage: (10 MG QD AT 10:00 H ORAL)
     Route: 048
  2. CARVEDILOL [Suspect]
     Indication: HYPERTENSION
     Dosage: (6.25 MG 1X/12 HOURS), (DF)
  3. FUROSEMIDE [Suspect]
     Indication: HYPERTENSION
     Dosage: (40 MG QD AT 12:00 H)
  4. DOXAZOSIN MESYLATE [Suspect]
     Indication: HYPERTENSION
     Dosage: 4 MG QD AT 22:00 H)

REACTIONS (6)
  - CEREBELLAR ATROPHY [None]
  - HYPERTENSION [None]
  - HYPOTENSION [None]
  - LACUNAR INFARCTION [None]
  - RENAL FAILURE [None]
  - SYNCOPE [None]
